FAERS Safety Report 10260014 (Version 2)
Quarter: 2014Q2

REPORT INFORMATION
  Report Type: Spontaneous
  Country: US (occurrence: US)
  Receive Date: 20140625
  Receipt Date: 20140627
  Transmission Date: 20141212
  Serious: No
  Sender: FDA-Public Use
  Company Number: US-009507513-1406USA009467

PATIENT
  Sex: Female

DRUGS (2)
  1. EMEND [Suspect]
     Indication: PROPHYLAXIS OF NAUSEA AND VOMITING
     Dosage: 80 MG, ON DAY TWO AND DAY THREE
     Route: 048
  2. EMEND [Suspect]
     Dosage: 125 MG, ON DAY ONE
     Route: 048
     Dates: start: 201402

REACTIONS (3)
  - Nausea [Recovered/Resolved]
  - Drug dose omission [Unknown]
  - Product physical issue [Unknown]
